FAERS Safety Report 4363739-2 (Version None)
Quarter: 2004Q2

REPORT INFORMATION
  Report Type: 
  Country: None (occurrence: None)
  Receive Date: 20040520
  Receipt Date: 20040520
  Transmission Date: 20050107
  Serious: Yes (Life-Threatening)
  Sender: FDA-Public Use
  Company Number: None

PATIENT
  Sex: Male
  Weight: 84 kg

DRUGS (1)
  1. TAXOL [Suspect]

REACTIONS (2)
  - DEVICE FAILURE [None]
  - ELECTROCARDIOGRAM ST SEGMENT ELEVATION [None]
